FAERS Safety Report 19448571 (Version 3)
Quarter: 2022Q2

REPORT INFORMATION
  Report Type: Spontaneous
  Country: US (occurrence: US)
  Receive Date: 20210622
  Receipt Date: 20220512
  Transmission Date: 20220721
  Serious: No
  Sender: FDA-Public Use
  Company Number: US-PFIZER INC-2021673444

PATIENT
  Age: 72 Year
  Sex: Female

DRUGS (3)
  1. XELJANZ [Suspect]
     Active Substance: TOFACITINIB CITRATE
     Indication: Arthritis
     Dosage: 10 MG
  2. XELJANZ [Suspect]
     Active Substance: TOFACITINIB CITRATE
     Dosage: 5 MG, 1X/DAY(XELJANZ 5MG 1 PO QD)
     Route: 048
  3. XELJANZ [Suspect]
     Active Substance: TOFACITINIB CITRATE
     Dosage: 5 MG

REACTIONS (8)
  - Hypoacusis [Unknown]
  - Pain [Unknown]
  - Joint swelling [Unknown]
  - Drug hypersensitivity [Recovering/Resolving]
  - Constipation [Unknown]
  - Arthralgia [Unknown]
  - Intentional product misuse [Unknown]
  - Blood pressure increased [Unknown]
